FAERS Safety Report 9869603 (Version 2)
Quarter: 2014Q1

REPORT INFORMATION
  Report Type: Spontaneous
  Country: US (occurrence: US)
  Receive Date: 20140205
  Receipt Date: 20140226
  Transmission Date: 20141002
  Serious: No
  Sender: FDA-Public Use
  Company Number: US-PFIZER INC-2014030513

PATIENT
  Age: 53 Year
  Sex: Female
  Weight: 102.1 kg

DRUGS (12)
  1. LYRICA [Suspect]
     Indication: FIBROMYALGIA
     Dosage: 75 MG, 2X/DAY
     Route: 048
  2. LYRICA [Suspect]
     Dosage: 75 MG, 1X/DAY ( ORAL QHS)
     Route: 048
     Dates: start: 20140110
  3. APLISOL [Concomitant]
     Dosage: UNK (5 TUB. UNIT/0.1ML INTRADERMAL INJECTION SOLUTION)
     Route: 023
     Dates: start: 20120410
  4. CELESTONE SOLUSPAN [Concomitant]
     Dosage: 6 MG/ML, UNK
     Dates: start: 20130923
  5. FOLIC ACID [Concomitant]
     Dosage: 1 MG, DAILY
     Route: 048
     Dates: start: 20131230
  6. IBUPROFEN [Concomitant]
     Dosage: UNK
     Dates: start: 20121106
  7. IBUPROFEN [Concomitant]
     Dosage: 600 MG, 2X/DAY
     Route: 048
     Dates: start: 20121219
  8. OMEPRAZOLE [Concomitant]
     Indication: GASTROOESOPHAGEAL REFLUX DISEASE
     Dosage: 40 MG, 1X/DAY, IN THE MORNING
     Route: 048
     Dates: start: 20121219
  9. TRAMADOL [Concomitant]
     Dosage: 50 MG, 3X/DAY
     Route: 048
     Dates: start: 20121115
  10. VITAMIN D3 [Concomitant]
     Dosage: 2000 IU, DAILY
     Route: 048
     Dates: start: 20140110
  11. HUMIRA [Concomitant]
     Dosage: 0.8 ML, EVERY 2 WKS
     Route: 058
     Dates: start: 20130919
  12. METHOTREXATE SODIUM [Concomitant]
     Dosage: 2.5 MG, WEEKLY
     Route: 048
     Dates: start: 20140110

REACTIONS (14)
  - Pain [Unknown]
  - Pruritus [Unknown]
  - Insomnia [Unknown]
  - Bursitis [Unknown]
  - Pain in extremity [Unknown]
  - Restless legs syndrome [Unknown]
  - Musculoskeletal stiffness [Unknown]
  - Onychoclasis [Unknown]
  - Local swelling [Unknown]
  - Headache [Unknown]
  - Blood pressure increased [Unknown]
  - Body mass index increased [Unknown]
  - Joint swelling [Unknown]
  - Drug effect incomplete [Unknown]
